FAERS Safety Report 5385811-0 (Version None)
Quarter: 2007Q3

REPORT INFORMATION
  Report Type: 
  Country: None (occurrence: None)
  Receive Date: 20070712
  Receipt Date: 20070703
  Transmission Date: 20080115
  Serious: Yes (Hospitalization, Disabling, Other)
  Sender: FDA-Public Use
  Company Number: US-ELI_LILLY_AND_COMPANY-US200707000759

PATIENT
  Age: 36 Year
  Sex: Female

DRUGS (1)
  1. HUMALOG [Suspect]
     Indication: DIABETES MELLITUS
     Dates: start: 19960101

REACTIONS (3)
  - ROAD TRAFFIC ACCIDENT [None]
  - SPINAL ROD INSERTION [None]
  - WHEELCHAIR USER [None]
